FAERS Safety Report 10892011 (Version 3)
Quarter: 2015Q2

REPORT INFORMATION
  Report Type: Spontaneous
  Country: JP (occurrence: JP)
  Receive Date: 20150306
  Receipt Date: 20150629
  Transmission Date: 20150821
  Serious: Yes (Disabling, Other)
  Sender: FDA-Public Use
  Company Number: JP-ROCHE-1549029

PATIENT
  Age: 72 Year
  Sex: Male

DRUGS (6)
  1. OLMETEC [Concomitant]
     Active Substance: OLMESARTAN MEDOXOMIL
  2. FEBURIC [Concomitant]
     Active Substance: FEBUXOSTAT
  3. LUCENTIS [Suspect]
     Active Substance: RANIBIZUMAB
     Indication: RETINAL VEIN OCCLUSION
     Route: 031
     Dates: start: 20150207
  4. CILNIDIPINE [Concomitant]
     Active Substance: CILNIDIPINE
  5. DOXAZOSIN [Concomitant]
     Active Substance: DOXAZOSIN\DOXAZOSIN MESYLATE
  6. BAYASPIRIN [Concomitant]
     Active Substance: ASPIRIN

REACTIONS (3)
  - Retinal detachment [Unknown]
  - Retinal artery occlusion [Recovered/Resolved with Sequelae]
  - Intraocular pressure increased [Unknown]

NARRATIVE: CASE EVENT DATE: 20150218
